FAERS Safety Report 5870303-2 (Version None)
Quarter: 2008Q3

REPORT INFORMATION
  Report Type: 
  Country: None (occurrence: None)
  Receive Date: 20080904
  Receipt Date: 20070829
  Transmission Date: 20090109
  Serious: No
  Sender: FDA-Public Use
  Company Number: US-BRISTOL-MYERS SQUIBB COMPANY-13893334

PATIENT
  Sex: Male

DRUGS (1)
  1. DEFINITY [Suspect]
     Indication: ECHOCARDIOGRAM
     Route: 042
     Dates: start: 20070815, end: 20070815

REACTIONS (2)
  - DYSPNOEA [None]
  - HYPERTENSION [None]
